FAERS Safety Report 15167222 (Version 2)
Quarter: 2018Q4

REPORT INFORMATION
  Report Type: Spontaneous
  Country: ES (occurrence: ES)
  Receive Date: 20180719
  Receipt Date: 20181107
  Transmission Date: 20190204
  Serious: Yes (Other)
  Sender: FDA-Public Use
  Company Number: ES-ELI_LILLY_AND_COMPANY-ES201807006845

PATIENT
  Age: 46 Year
  Sex: Female

DRUGS (2)
  1. TOFACITINIB [Concomitant]
     Active Substance: TOFACITINIB
     Indication: PRODUCT USED FOR UNKNOWN INDICATION
     Dosage: 1 DF, UNKNOWN
     Route: 065
  2. BARICITINIB [Suspect]
     Active Substance: BARICITINIB
     Indication: RHEUMATOID ARTHRITIS
     Dosage: 4 MG, DAILY
     Route: 065
     Dates: start: 20180323

REACTIONS (5)
  - Macular oedema [Recovered/Resolved]
  - Iridocyclitis [Not Recovered/Not Resolved]
  - Visual impairment [Unknown]
  - Cataract subcapsular [Unknown]
  - Rheumatoid arthritis [Recovered/Resolved]
